FAERS Safety Report 7181238-X (Version None)
Quarter: 2010Q4

REPORT INFORMATION
  Report Type: 
  Country: None (occurrence: None)
  Receive Date: 20101221
  Receipt Date: 20100421
  Transmission Date: 20110411
  Serious: No
  Sender: FDA-Public Use
  Company Number: US-AMGEN-KDL407666

PATIENT

DRUGS (12)
  1. ENBREL [Suspect]
     Indication: PRODUCT USED FOR UNKNOWN INDICATION
     Dosage: 50 MG, QWK
     Route: 058
  2. METHOTREXATE [Concomitant]
     Dosage: 2.5 MG, UNK
  3. AMLODIPINE BESYLATE [Concomitant]
     Dosage: 5 MG, UNK
  4. VALSARTAN [Concomitant]
     Dosage: 160 MG, UNK
  5. TERAZOSIN HCL [Concomitant]
     Dosage: 1 MG, UNK
  6. FOLIC ACID [Concomitant]
     Dosage: 1 MG, UNK
  7. COENZYME Q10 [Concomitant]
     Dosage: 100 MG, UNK
  8. CALCIUM CITRATE [Concomitant]
     Dosage: UNK UNK, UNK
  9. ERGOCALCIFEROL [Concomitant]
  10. COLECALCIFEROL [Concomitant]
     Dosage: 1000 IU, UNK
  11. CYANOCOBALAMIN [Concomitant]
     Dosage: UNK UNK, UNK
  12. YEAST DRIED [Concomitant]
     Dosage: 600 MG, UNK

REACTIONS (3)
  - HYPERLIPIDAEMIA [None]
  - HYPERTENSION [None]
  - URINARY TRACT INFECTION [None]
